FAERS Safety Report 6388840-3 (Version None)
Quarter: 2009Q3

REPORT INFORMATION
  Report Type: 
  Country: None (occurrence: None)
  Receive Date: 20090925
  Receipt Date: 20080811
  Transmission Date: 20100115
  Serious: Yes (Other)
  Sender: FDA-Public Use
  Company Number: 51414

PATIENT
  Age: 14 Year
  Sex: Male

DRUGS (1)
  1. CYTARABINE [Suspect]

REACTIONS (1)
  - NAUSEA [None]
